FAERS Safety Report 20653438 (Version 1)
Quarter: 2022Q1

REPORT INFORMATION
  Report Type: Spontaneous
  Country: US (occurrence: US)
  Receive Date: 20220330
  Receipt Date: 20220330
  Transmission Date: 20220423
  Serious: No
  Sender: FDA-Public Use
  Company Number: US-ALLERGAN-2209767US

PATIENT

DRUGS (12)
  1. UBRELVY [Suspect]
     Active Substance: UBROGEPANT
     Indication: Migraine
  2. BOTOX [Concomitant]
     Active Substance: ONABOTULINUMTOXINA
  3. UNSPECIFIED INGREDIENT [Concomitant]
     Active Substance: UNSPECIFIED INGREDIENT
  4. AIMOVIG [Concomitant]
     Active Substance: ERENUMAB-AOOE
  5. EMGALITY [Concomitant]
     Active Substance: GALCANEZUMAB-GNLM
  6. AJOVY [Concomitant]
     Active Substance: FREMANEZUMAB-VFRM
  7. TOPIRAMATE [Concomitant]
     Active Substance: TOPIRAMATE
  8. TOPAMAX [Concomitant]
     Active Substance: TOPIRAMATE
  9. NURTEC ODT [Concomitant]
     Active Substance: RIMEGEPANT SULFATE
  10. ADVIL [Concomitant]
     Active Substance: IBUPROFEN
  11. FIORICET [Concomitant]
     Active Substance: ACETAMINOPHEN\BUTALBITAL\CAFFEINE
  12. ACETAMINOPHEN\CAFFEINE [Concomitant]
     Active Substance: ACETAMINOPHEN\CAFFEINE

REACTIONS (1)
  - Drug ineffective [Unknown]
